FAERS Safety Report 17430502 (Version 1)
Quarter: 2020Q1

REPORT INFORMATION
  Report Type: Spontaneous
  Country: US (occurrence: US)
  Receive Date: 20200203
  Receipt Date: 20200203
  Transmission Date: 20200409
  Serious: Yes (Life-Threatening, Disabling)
  Sender: FDA-Public Use
  Company Number: None

PATIENT
  Age: 25 Year
  Sex: Female
  Weight: 78.02 kg

DRUGS (1)
  1. LAMOTRIGINE 100MG TABLET TARO PHARM USA [Suspect]
     Active Substance: LAMOTRIGINE
     Indication: AFFECTIVE DISORDER
     Dosage: ?          QUANTITY:60 UNK - UNKNOWN;?
     Route: 048
     Dates: start: 20190123, end: 20190827

REACTIONS (2)
  - Respiratory disorder [None]
  - Recalled product administered [None]

NARRATIVE: CASE EVENT DATE: 20190828
